FAERS Safety Report 5893643-X (Version None)
Quarter: 2008Q3

REPORT INFORMATION
  Report Type: 
  Country: None (occurrence: None)
  Receive Date: 20080923
  Receipt Date: 20070928
  Transmission Date: 20090109
  Serious: No
  Sender: FDA-Public Use
  Company Number: US-ASTRAZENECA-2007UW22795

PATIENT
  Age: 37 Year
  Sex: Male

DRUGS (2)
  1. SEROQUEL [Suspect]
     Route: 048
  2. VALIUM [Concomitant]

REACTIONS (3)
  - COORDINATION ABNORMAL [None]
  - SPEECH DISORDER [None]
  - VISION BLURRED [None]
